FAERS Safety Report 14368192 (Version 1)
Quarter: 2018Q1

REPORT INFORMATION
  Report Type: Spontaneous
  Country: US (occurrence: US)
  Receive Date: 20180109
  Receipt Date: 20180109
  Transmission Date: 20180509
  Serious: No
  Sender: FDA-Public Use
  Company Number: US-PFIZER INC-2018008846

PATIENT
  Sex: Female

DRUGS (2)
  1. IBUPROFEN. [Suspect]
     Active Substance: IBUPROFEN
     Indication: MIGRAINE
     Dosage: UNK
  2. BUTALBITAL [Suspect]
     Active Substance: BUTALBITAL
     Indication: MIGRAINE
     Dosage: UNK

REACTIONS (2)
  - Vulvovaginal swelling [Unknown]
  - Peripheral swelling [Unknown]
